FAERS Safety Report 16871144 (Version 1)
Quarter: 2019Q3

REPORT INFORMATION
  Report Type: Spontaneous
  Country: US (occurrence: US)
  Receive Date: 20190806
  Receipt Date: 20190806
  Transmission Date: 20191007
  Serious: Yes (Disabling)
  Sender: FDA-Public Use
  Company Number: None

PATIENT
  Sex: Female

DRUGS (1)
  1. GENERIC CARBIDOPA/LEVODOPA 25/100 [Suspect]
     Active Substance: CARBIDOPA\LEVODOPA
     Indication: DYSTONIA
     Dosage: ?          OTHER DOSE:1-2 TABLETS;?
     Route: 048

REACTIONS (2)
  - Therapeutic product effect incomplete [None]
  - Product substitution issue [None]
